FAERS Safety Report 6956201-1 (Version None)
Quarter: 2010Q3

REPORT INFORMATION
  Report Type: 
  Country: None (occurrence: None)
  Receive Date: 20100830
  Receipt Date: 20100819
  Transmission Date: 20110219
  Serious: Yes (Other)
  Sender: FDA-Public Use
  Company Number: US-WYE-H17009310

PATIENT
  Sex: Male
  Weight: 127.12 kg

DRUGS (13)
  1. PROTONIX [Suspect]
     Indication: APHAGIA
     Dosage: UNKNOWN
     Dates: start: 20090101, end: 20100801
  2. BUPROPION [Concomitant]
     Indication: DEPRESSION
  3. FLUVOXAMINE MALEATE [Concomitant]
     Indication: DEPRESSION
  4. GLIPIZIDE [Concomitant]
     Indication: DIABETES MELLITUS
  5. METFORMIN HCL [Concomitant]
     Indication: DIABETES MELLITUS
  6. VITAMINS [Concomitant]
     Dosage: UNKNOWN
  7. RANITIDINE [Concomitant]
     Indication: DYSPEPSIA
  8. SIMVASTATIN [Concomitant]
     Indication: BLOOD CHOLESTEROL INCREASED
  9. FENOFIBRATE [Concomitant]
     Indication: BLOOD CHOLESTEROL INCREASED
  10. VALIUM [Concomitant]
     Indication: MUSCLE SPASMS
     Dosage: 10 MG PRN
  11. VICODIN [Concomitant]
     Indication: PAIN
     Dosage: 10/660 MG
  12. ASPIRIN [Concomitant]
  13. LISINOPRIL [Concomitant]
     Indication: HYPERTENSION
     Dosage: UNKNOWN

REACTIONS (5)
  - BACK DISORDER [None]
  - CONDITION AGGRAVATED [None]
  - DIABETES MELLITUS [None]
  - HIGH DENSITY LIPOPROTEIN DECREASED [None]
  - LOW DENSITY LIPOPROTEIN INCREASED [None]
